FAERS Safety Report 20638137 (Version 1)
Quarter: 2022Q1

REPORT INFORMATION
  Report Type: Spontaneous
  Country: CZ (occurrence: CZ)
  Receive Date: 20220325
  Receipt Date: 20220325
  Transmission Date: 20220423
  Serious: Yes (Other)
  Sender: FDA-Public Use
  Company Number: None

PATIENT
  Age: 50 Year
  Sex: Female
  Weight: 62 kg

DRUGS (2)
  1. DEPO-MEDROL [Suspect]
     Active Substance: METHYLPREDNISOLONE ACETATE
     Indication: Upper limb fracture
     Dosage: 40 MG
     Route: 008
     Dates: start: 20191003
  2. MESOCAIN [TRIMECAINE HYDROCHLORIDE] [Concomitant]
     Dosage: THE PRODUCT WAS APPLIED ONLY ONCE, SINGLE
     Route: 008
     Dates: start: 20191003, end: 20191003

REACTIONS (5)
  - Palpitations [Recovered/Resolved]
  - Asthenia [Recovered/Resolved]
  - Night sweats [Recovered/Resolved]
  - Chills [Recovered/Resolved]
  - Off label use [Unknown]

NARRATIVE: CASE EVENT DATE: 20191003
